FAERS Safety Report 7244903-1 (Version None)
Quarter: 2011Q1

REPORT INFORMATION
  Report Type: 
  Country: None (occurrence: None)
  Receive Date: 20110126
  Receipt Date: 20110119
  Transmission Date: 20110831
  Serious: Yes (Other)
  Sender: FDA-Public Use
  Company Number: JP-PFIZER INC-2011013387

PATIENT
  Age: 83 Year
  Sex: Male

DRUGS (15)
  1. OLMETEC [Concomitant]
     Dosage: 20 MG/DAY
     Route: 048
  2. BIO THREE [Concomitant]
     Dosage: 1 G/DAY
     Route: 048
  3. LASIX [Concomitant]
     Dosage: 20 MG/DAY
     Route: 048
  4. NEUROTROPIN [Concomitant]
     Dosage: UNK
     Route: 048
  5. LYRICA [Suspect]
     Dosage: 150 MG/DAY
     Route: 048
     Dates: start: 20100101, end: 20101222
  6. TAKEPRON [Suspect]
     Dosage: 15 MG/DAY
     Route: 048
  7. BICALUTAMIDE [Suspect]
     Dosage: 80 MG/DAY
     Route: 048
  8. NITOROL R [Concomitant]
     Dosage: 20 MG/DAY
     Route: 048
  9. PROMAC /JPN/ [Concomitant]
     Dosage: 75 MG/DAY
     Route: 048
  10. DEPAS [Suspect]
     Dosage: 0.5 MG/DAY
     Route: 048
  11. CALBLOCK [Concomitant]
     Dosage: 8 MG/DAY
     Route: 048
  12. UBRETID [Concomitant]
     Dosage: 5 MG/DAY
     Route: 048
  13. SIGMART [Concomitant]
     Dosage: 5 MG/DAY
     Route: 048
  14. MAGNESIUM OXIDE [Concomitant]
     Dosage: 1 G/DAY
     Route: 048
  15. TAMSULOSIN HCL [Concomitant]
     Dosage: 0.2 MG/DAY
     Route: 048

REACTIONS (1)
  - INTERSTITIAL LUNG DISEASE [None]
